FAERS Safety Report 9365285 (Version 1)
Quarter: 2013Q2

REPORT INFORMATION
  Report Type: Spontaneous
  Country: US (occurrence: US)
  Receive Date: 20130625
  Receipt Date: 20130625
  Transmission Date: 20140414
  Serious: Yes (Other)
  Sender: FDA-Public Use
  Company Number: US-JNJCP-30000155971

PATIENT
  Age: 62 Year
  Sex: Female
  Weight: 61 kg

DRUGS (5)
  1. NEUTROGENA ULTIMATE SPORT SUNBLOCK LOTION SPF70+ [Suspect]
     Indication: PROPHYLAXIS
     Dosage: DIME-SIZED AMOUNT, ONCE
     Route: 061
     Dates: start: 20130329, end: 20130329
  2. CQ10 [Concomitant]
     Indication: ROUTINE HEALTH MAINTENANCE
     Dosage: ONE PER DAY, SINCE ONE YEAR
  3. FISH OIL [Concomitant]
     Indication: ROUTINE HEALTH MAINTENANCE
     Dosage: 2000IU, SINCE THREE YEARS
  4. PRAVASTATIN [Concomitant]
     Indication: BLOOD CHOLESTEROL INCREASED
     Dosage: 50MG, SINCE SIX MONTHS
  5. PROBIOTIC [Concomitant]
     Dosage: ONE PER DAY, SINCE TWO YEARS

REACTIONS (2)
  - Application site swelling [Recovering/Resolving]
  - Angioedema [Recovered/Resolved]
